FAERS Safety Report 11136583 (Version 1)
Quarter: 2015Q2

REPORT INFORMATION
  Report Type: Spontaneous
  Country: US (occurrence: US)
  Receive Date: 20150526
  Receipt Date: 20150526
  Transmission Date: 20150821
  Serious: Yes (Other)
  Sender: FDA-Public Use
  Company Number: US-B.I. PHARMACEUTICALS,INC./RIDGEFIELD-2015-BI-25782BP

PATIENT
  Age: 63 Year

DRUGS (1)
  1. GLYXAMBI [Suspect]
     Active Substance: EMPAGLIFLOZIN\LINAGLIPTIN
     Indication: TYPE 2 DIABETES MELLITUS
     Dosage: STRENGTH: 25 MG/ 5 MG; DAILY DOSE: 25 MG/ 5 MG
     Route: 048
     Dates: start: 201503

REACTIONS (15)
  - Thyroiditis acute [Unknown]
  - Cachexia [Unknown]
  - Heart rate increased [Unknown]
  - Night sweats [Unknown]
  - Blood sodium decreased [Unknown]
  - Blood urea increased [Unknown]
  - Dehydration [Unknown]
  - Abnormal loss of weight [Not Recovered/Not Resolved]
  - Fatigue [Unknown]
  - Chills [Unknown]
  - Asthenia [Unknown]
  - Decreased appetite [Unknown]
  - Neutrophil count increased [Unknown]
  - Tremor [Unknown]
  - Weight decreased [Recovered/Resolved]

NARRATIVE: CASE EVENT DATE: 2015
